FAERS Safety Report 4518122-3 (Version None)
Quarter: 2004Q4

REPORT INFORMATION
  Report Type: 
  Country: None (occurrence: None)
  Receive Date: 20041130
  Receipt Date: 20041122
  Transmission Date: 20050328
  Serious: Yes (Disabling)
  Sender: FDA-Public Use
  Company Number: FRWYE224222NOV04

PATIENT
  Age: 67 Year
  Sex: Female

DRUGS (2)
  1. EFFEXOR [Suspect]
     Indication: BIPOLAR II DISORDER
     Dosage: 37.5 MG 1X PER 1 DAY
     Route: 048
     Dates: start: 20040929, end: 20041001
  2. LITHIUM CARBONATE [Concomitant]

REACTIONS (6)
  - DIFFICULTY IN WALKING [None]
  - DRUG TOXICITY [None]
  - DYSTONIA [None]
  - MUSCULOSKELETAL STIFFNESS [None]
  - MYOCLONUS [None]
  - NAUSEA [None]
